FAERS Safety Report 5132270-9 (Version None)
Quarter: 2006Q4

REPORT INFORMATION
  Report Type: 
  Country: None (occurrence: None)
  Receive Date: 20061017
  Receipt Date: 20061005
  Transmission Date: 20070319
  Serious: Yes (Hospitalization)
  Sender: FDA-Public Use
  Company Number: 230788

PATIENT
  Sex: Female

DRUGS (4)
  1. AVASTIN [Suspect]
     Indication: COLORECTAL CANCER
     Dosage: 5 MG/KG, Q2W, INTRAVENOUS
     Route: 042
     Dates: start: 20060101, end: 20060701
  2. OXALIPLATIN [Concomitant]
  3. LEUCOVORIN (LEUCOVORIN CALCIUM) [Concomitant]
  4. FLUOROURACIL [Concomitant]

REACTIONS (1)
  - PNEUMONITIS [None]
